FAERS Safety Report 5420287-6 (Version None)
Quarter: 2007Q3

REPORT INFORMATION
  Report Type: 
  Country: None (occurrence: None)
  Receive Date: 20070815
  Receipt Date: 20070716
  Transmission Date: 20080115
  Serious: Yes (Life-Threatening, Hospitalization)
  Sender: FDA-Public Use
  Company Number: 6035749

PATIENT
  Age: 25 Year
  Sex: Female

DRUGS (5)
  1. CLONAZEPAM [Suspect]
     Indication: DRUG USE FOR UNKNOWN INDICATION
     Dosage: 66 MG (66 MG,1 IN 1 ONCE)
  2. RISPERIDONE [Suspect]
     Indication: DRUG USE FOR UNKNOWN INDICATION
     Dosage: 88 MG (88 MG, 1 IN 1 ONCE)
  3. TRIHEXYPHENIDYL HCL [Suspect]
     Indication: DRUG USE FOR UNKNOWN INDICATION
     Dosage: 44 MG (44 MG, 1 IN 1 ONCE)
  4. VALPROIC ACID [Suspect]
     Indication: DRUG USE FOR UNKNOWN INDICATION
     Dosage: 22 MG (22 MG, 1 IN 1 ONCE)
  5. ZIPRASIDONE HCL [Suspect]
     Indication: DRUG USE FOR UNKNOWN INDICATION
     Dosage: 880 MG (880 MG, 1 IN 1 ONCE)

REACTIONS (14)
  - ATRIAL FIBRILLATION [None]
  - BLOOD CALCIUM INCREASED [None]
  - BLOOD PRESSURE DECREASED [None]
  - COMA [None]
  - ELECTROCARDIOGRAM QT PROLONGED [None]
  - HAEMOGLOBIN DECREASED [None]
  - HEART RATE IRREGULAR [None]
  - HYPOTONIA [None]
  - INSOMNIA [None]
  - MIOSIS [None]
  - MULTIPLE DRUG OVERDOSE [None]
  - PUPILLARY REFLEX IMPAIRED [None]
  - RESPIRATORY FAILURE [None]
  - WHITE BLOOD CELL COUNT INCREASED [None]
